FAERS Safety Report 8697383 (Version 3)
Quarter: 2012Q4

REPORT INFORMATION
  Report Type: 
  Country: ES (occurrence: ES)
  Receive Date: 20120801
  Receipt Date: 20120927
  Transmission Date: 20130627
  Serious: Yes (Other)
  Sender: FDA-Public Use
  Company Number: ES-ELI_LILLY_AND_COMPANY-ES201207006989

PATIENT
  Age: 62 None
  Sex: Female
  Weight: 48 kg

DRUGS (4)
  1. FORSTEO [Suspect]
     Indication: OSTEOPOROSIS
     Dosage: UNK, unknown
     Route: 058
     Dates: start: 20120710
  2. FORSTEO [Suspect]
  3. EUTIROX [Concomitant]
     Indication: HYPOTHYROIDISM
     Dosage: 75 mg, qd
     Route: 048
  4. ORFIDAL [Concomitant]
     Indication: SLEEP DISORDER

REACTIONS (7)
  - Ear disorder [Unknown]
  - Groin pain [Not Recovered/Not Resolved]
  - Lethargy [Unknown]
  - Injection site erythema [Unknown]
  - Asthenia [Unknown]
  - Myalgia [Unknown]
  - Overdose [Unknown]
